FAERS Safety Report 23015635 (Version 2)
Quarter: 2024Q2

REPORT INFORMATION
  Report Type: Spontaneous
  Country: US (occurrence: US)
  Receive Date: 20231002
  Receipt Date: 20240504
  Transmission Date: 20240716
  Serious: Yes (Death, Other)
  Sender: FDA-Public Use
  Company Number: US-Accord-382412

PATIENT

DRUGS (2)
  1. QUETIAPINE FUMARATE [Suspect]
     Active Substance: QUETIAPINE FUMARATE
     Dosage: 200 MG TABLETS, 800-1000 MG, DAILY FOR 15 YEARS TILL 2018
     Route: 064
  2. SEROQUEL [Suspect]
     Active Substance: QUETIAPINE FUMARATE
     Dosage: TILL 2018
     Route: 064

REACTIONS (4)
  - Foetal death [Fatal]
  - Foetal exposure during pregnancy [Unknown]
  - Spina bifida [Unknown]
  - Talipes [Unknown]
